FAERS Safety Report 5823906-5 (Version None)
Quarter: 2008Q3

REPORT INFORMATION
  Report Type: 
  Country: None (occurrence: None)
  Receive Date: 20080724
  Receipt Date: 20080709
  Transmission Date: 20090109
  Serious: Yes (Death)
  Sender: FDA-Public Use
  Company Number: KADN20080011

PATIENT
  Age: 40 Year
  Sex: Male
  Weight: 136.0791 kg

DRUGS (3)
  1. KADIAN [Suspect]
     Indication: MUSCULOSKELETAL PAIN
     Dosage: 20 MG, BID, PER ORAL
     Route: 048
     Dates: start: 20080201, end: 20080301
  2. COCAINE [Suspect]
     Dates: end: 20080301
  3. BUPROPION HCL [Suspect]
     Dates: end: 20080301

REACTIONS (13)
  - BICUSPID AORTIC VALVE [None]
  - BLOOD ALCOHOL INCREASED [None]
  - CARDIOMEGALY [None]
  - CONJUNCTIVAL HYPERAEMIA [None]
  - CONTUSION [None]
  - DRUG SCREEN POSITIVE [None]
  - DRUG TOXICITY [None]
  - EXCORIATION [None]
  - HEPATIC STEATOSIS [None]
  - HEPATOMEGALY [None]
  - LEFT VENTRICULAR HYPERTROPHY [None]
  - PULMONARY OEDEMA [None]
  - PULMONARY VASCULAR DISORDER [None]
